FAERS Safety Report 9108036 (Version 1)
Quarter: 2013Q1

REPORT INFORMATION
  Report Type: Spontaneous
  Country: DE (occurrence: DE)
  Receive Date: 20130221
  Receipt Date: 20130221
  Transmission Date: 20140127
  Serious: Yes (Other)
  Sender: FDA-Public Use
  Company Number: DE-ELI_LILLY_AND_COMPANY-DE201302003602

PATIENT
  Sex: Female

DRUGS (5)
  1. FORSTEO [Suspect]
     Indication: OSTEOPOROSIS
     Dosage: UNK, QD
     Route: 058
     Dates: start: 20120803
  2. DEKRISTOL [Concomitant]
  3. LISINOPRIL [Concomitant]
  4. BISOPROLOL [Concomitant]
  5. SIMVASTATIN [Concomitant]

REACTIONS (1)
  - Thrombosis [Not Recovered/Not Resolved]
